FAERS Safety Report 4354137-6 (Version None)
Quarter: 2004Q2

REPORT INFORMATION
  Report Type: 
  Country: None (occurrence: None)
  Receive Date: 20040505
  Receipt Date: 20040505
  Transmission Date: 20050107
  Serious: Yes (Hospitalization)
  Sender: FDA-Public Use
  Company Number: None

PATIENT
  Age: 50 Year
  Sex: Male
  Weight: 74.8435 kg

DRUGS (5)
  1. CISPLATIN [Suspect]
     Indication: GASTRIC CANCER
     Dosage: 30MG/M2 ON DAYS 1,8,15,22,29 OF EACH CYCLE
     Dates: start: 20040126, end: 20040419
  2. CISPLATIN [Suspect]
     Indication: OESOPHAGEAL CARCINOMA
     Dosage: 30MG/M2 ON DAYS 1,8,15,22,29 OF EACH CYCLE
     Dates: start: 20040126, end: 20040419
  3. TAXOL [Suspect]
     Indication: GASTRIC CANCER
     Dosage: 60MG/M2/96 HRS ON DAYS 5; 8-12;15-19;22-26;29-33 Q CYCLE
     Dates: start: 20040126, end: 20040419
  4. TAXOL [Suspect]
     Indication: OESOPHAGEAL CARCINOMA
     Dosage: 60MG/M2/96 HRS ON DAYS 5; 8-12;15-19;22-26;29-33 Q CYCLE
     Dates: start: 20040126, end: 20040419
  5. GENTAMICIN [Concomitant]

REACTIONS (13)
  - CENTRAL LINE INFECTION [None]
  - CHILLS [None]
  - ENTEROBACTER INFECTION [None]
  - FEELING ABNORMAL [None]
  - HAEMATOCRIT DECREASED [None]
  - HAEMOGLOBIN DECREASED [None]
  - HYPOXIA [None]
  - NAUSEA [None]
  - PLATELET COUNT DECREASED [None]
  - PYREXIA [None]
  - SERRATIA INFECTION [None]
  - VOMITING [None]
  - WHITE BLOOD CELL COUNT DECREASED [None]
